FAERS Safety Report 5293207-5 (Version None)
Quarter: 2007Q2

REPORT INFORMATION
  Report Type: 
  Country: None (occurrence: None)
  Receive Date: 20070404
  Receipt Date: 20070326
  Transmission Date: 20071010
  Serious: Yes (Other)
  Sender: FDA-Public Use
  Company Number: CHNY2007JP01381

PATIENT
  Age: 54 Year
  Sex: Female

DRUGS (1)
  1. NICOTINE [Suspect]
     Indication: NICOTINE DEPENDENCE
     Dosage: 21 MG, QD, TRANSDERMAL
     Route: 062
     Dates: start: 20070223, end: 20070312

REACTIONS (6)
  - ANGIOEDEMA [None]
  - ERYTHEMA [None]
  - OEDEMA MOUTH [None]
  - ORAL PAIN [None]
  - SCAB [None]
  - STOMATITIS [None]
